FAERS Safety Report 23442436 (Version 2)
Quarter: 2024Q1

REPORT INFORMATION
  Report Type: Spontaneous
  Country: GB (occurrence: GB)
  Receive Date: 20240125
  Receipt Date: 20240224
  Transmission Date: 20240410
  Serious: Yes (Other)
  Sender: FDA-Public Use
  Company Number: None

PATIENT
  Sex: Male

DRUGS (1)
  1. PALIPERIDONE PALMITATE [Suspect]
     Active Substance: PALIPERIDONE PALMITATE
     Indication: Psychotic disorder
     Route: 065

REACTIONS (7)
  - Alopecia [Unknown]
  - Memory impairment [Unknown]
  - Diarrhoea [Unknown]
  - Erectile dysfunction [Unknown]
  - Disturbance in attention [Unknown]
  - Insomnia [Unknown]
  - Abnormal weight gain [Unknown]
